FAERS Safety Report 4581867-3 (Version None)
Quarter: 2005Q1

REPORT INFORMATION
  Report Type: 
  Country: None (occurrence: None)
  Receive Date: 20050214
  Receipt Date: 20040324
  Transmission Date: 20050727
  Serious: Yes (Life-Threatening, Other)
  Sender: FDA-Public Use
  Company Number: US-GLAXOSMITHKLINE-A0504660A

PATIENT
  Age: 45 Year
  Sex: Male

DRUGS (2)
  1. LAMICTAL [Suspect]
     Dosage: 25MG PER DAY
     Route: 048
     Dates: start: 20040107, end: 20040319
  2. TRILEPTAL [Concomitant]
     Dosage: 300MG TWICE PER DAY
     Route: 048

REACTIONS (1)
  - RASH [None]
